FAERS Safety Report 11942513 (Version 1)
Quarter: 2016Q1

REPORT INFORMATION
  Report Type: Spontaneous
  Country: US (occurrence: US)
  Receive Date: 20160125
  Receipt Date: 20160125
  Transmission Date: 20160526
  Serious: No
  Sender: FDA-Public Use
  Company Number: US-UNITED THERAPEUTICS-UNT-2015-006712

PATIENT
  Sex: Female

DRUGS (2)
  1. ORENITRAM [Suspect]
     Active Substance: TREPROSTINIL
     Indication: PRODUCT USED FOR UNKNOWN INDICATION
     Dosage: 3.5 MG, DAILY
     Route: 048
     Dates: start: 20150601, end: 20150602
  2. ORENITRAM [Suspect]
     Active Substance: TREPROSTINIL
     Dosage: 3.5 MG, TID
     Route: 048
     Dates: start: 20150603

REACTIONS (3)
  - Inappropriate schedule of drug administration [Unknown]
  - Treatment noncompliance [Unknown]
  - Drug dose omission [Unknown]

NARRATIVE: CASE EVENT DATE: 20150601
